FAERS Safety Report 15079984 (Version 5)
Quarter: 2020Q3

REPORT INFORMATION
  Report Type: Report from Study
  Country: US (occurrence: US)
  Receive Date: 20180627
  Receipt Date: 20200901
  Transmission Date: 20201102
  Serious: Yes (Other)
  Sender: FDA-Public Use
  Company Number: PHHY2018US052054

PATIENT
  Age: 66 Year
  Sex: Female

DRUGS (1)
  1. GILENYA [Suspect]
     Active Substance: FINGOLIMOD HYDROCHLORIDE
     Indication: MULTIPLE SCLEROSIS
     Dosage: UNK UNK, QD
     Route: 048

REACTIONS (7)
  - Tendon rupture [Unknown]
  - Lymphocyte percentage decreased [Unknown]
  - Syncope [Recovered/Resolved]
  - Acquired claw toe [Recovered/Resolved]
  - Cough [Recovered/Resolved]
  - Tendon rupture [Recovered/Resolved]
  - Sinus bradycardia [Recovered/Resolved]

NARRATIVE: CASE EVENT DATE: 20170426
